FAERS Safety Report 19181009 (Version 3)
Quarter: 2021Q2

REPORT INFORMATION
  Report Type: Spontaneous
  Country: DE (occurrence: DE)
  Receive Date: 20210426
  Receipt Date: 20210507
  Transmission Date: 20210717
  Serious: Yes (Other)
  Sender: FDA-Public Use
  Company Number: DE-OTSUKA-2021_013456

PATIENT
  Age: 43 Year
  Sex: Female
  Weight: 71 kg

DRUGS (2)
  1. ABILIFY [Suspect]
     Active Substance: ARIPIPRAZOLE
     Indication: SCHIZOAFFECTIVE DISORDER
  2. ABILIFY [Suspect]
     Active Substance: ARIPIPRAZOLE
     Indication: PSYCHOTIC DISORDER
     Dosage: 10?15 MG DAILY
     Route: 048
     Dates: start: 201805, end: 202002

REACTIONS (9)
  - Tardive dyskinesia [Not Recovered/Not Resolved]
  - Bruxism [Unknown]
  - Bruxism [Recovering/Resolving]
  - Product use in unapproved indication [Unknown]
  - Buccoglossal syndrome [Not Recovered/Not Resolved]
  - Tic [Not Recovered/Not Resolved]
  - Muscle twitching [Recovering/Resolving]
  - Dyskinesia [Not Recovered/Not Resolved]
  - Dyskinesia [Not Recovered/Not Resolved]

NARRATIVE: CASE EVENT DATE: 2018
